FAERS Safety Report 13555514 (Version 1)
Quarter: 2017Q2

REPORT INFORMATION
  Report Type: Spontaneous
  Country: US (occurrence: US)
  Receive Date: 20170517
  Receipt Date: 20170517
  Transmission Date: 20170830
  Serious: No
  Sender: FDA-Public Use
  Company Number: US-MYLANLABS-2016M1047176

PATIENT
  Age: 82 Year
  Sex: Female
  Weight: 58.5 kg

DRUGS (1)
  1. OLUX [Suspect]
     Active Substance: CLOBETASOL PROPIONATE
     Indication: SKIN DISORDER
     Dosage: UNK
     Route: 061
     Dates: start: 20140507

REACTIONS (1)
  - Skin burning sensation [Recovered/Resolved]

NARRATIVE: CASE EVENT DATE: 20140507
